FAERS Safety Report 24537357 (Version 1)
Quarter: 2024Q4

REPORT INFORMATION
  Report Type: Spontaneous
  Country: CN (occurrence: CN)
  Receive Date: 20241022
  Receipt Date: 20241022
  Transmission Date: 20250115
  Serious: Yes (Hospitalization)
  Sender: SHENZHEN TECHDOW PHARMACEUTICAL
  Company Number: CN-91440300279544901A-J2024HPR000618

PATIENT
  Age: 69 Year
  Sex: Male
  Weight: 51.5 kg

DRUGS (2)
  1. ENOXAPARIN SODIUM [Suspect]
     Active Substance: ENOXAPARIN SODIUM
     Indication: Venous thrombosis limb
     Dosage: 4000IU,EVERY 12 HOURS
     Dates: start: 20240913, end: 20240919
  2. RIVAROXABAN [Suspect]
     Active Substance: RIVAROXABAN
     Indication: Venous thrombosis limb
     Dosage: 15MG,BID
     Dates: start: 20240920, end: 20240925

REACTIONS (1)
  - Coagulopathy [Recovering/Resolving]

NARRATIVE: CASE EVENT DATE: 20240919
